FAERS Safety Report 25857589 (Version 1)
Quarter: 2025Q3

REPORT INFORMATION
  Report Type: Report from Study
  Country: CO (occurrence: CO)
  Receive Date: 20250929
  Receipt Date: 20250929
  Transmission Date: 20251021
  Serious: Yes (Hospitalization)
  Sender: ABBVIE
  Company Number: CO-ABBVIE-6475894

PATIENT
  Age: 59 Year
  Sex: Female
  Weight: 89 kg

DRUGS (2)
  1. SKYRIZI [Suspect]
     Active Substance: RISANKIZUMAB-RZAA
     Indication: Psoriasis
     Dosage: PRE-FILLED SYRINGE
     Route: 058
     Dates: start: 20211202
  2. X-Ray Dol [Concomitant]
     Indication: Migraine
     Route: 048
     Dates: start: 202506

REACTIONS (8)
  - Poisoning [Recovering/Resolving]
  - Migraine [Not Recovered/Not Resolved]
  - Sleep apnoea syndrome [Not Recovered/Not Resolved]
  - Skin papilloma [Not Recovered/Not Resolved]
  - Headache [Unknown]
  - Asphyxia [Unknown]
  - Tachycardia [Unknown]
  - Pruritus [Not Recovered/Not Resolved]

NARRATIVE: CASE EVENT DATE: 20220101
